FAERS Safety Report 25129394 (Version 1)
Quarter: 2025Q1

REPORT INFORMATION
  Report Type: Spontaneous
  Country: US (occurrence: None)
  Receive Date: 20250326
  Receipt Date: 20250326
  Transmission Date: 20250409
  Serious: Yes (Disabling)
  Sender: FDA-CTU
  Company Number: None

PATIENT
  Age: 67 Year
  Sex: Female
  Weight: 51.75 kg

DRUGS (7)
  1. OZEMPIC [Suspect]
     Active Substance: SEMAGLUTIDE
     Indication: Diabetes mellitus
     Route: 050
  2. Effexor75xr [Concomitant]
  3. REPATHA [Concomitant]
     Active Substance: EVOLOCUMAB
  4. VYVANSE [Concomitant]
     Active Substance: LISDEXAMFETAMINE DIMESYLATE
  5. metphorin [Concomitant]
  6. ASPIRIN [Concomitant]
     Active Substance: ASPIRIN
  7. ZYRTEC [Concomitant]
     Active Substance: CETIRIZINE HYDROCHLORIDE

REACTIONS (8)
  - Illness [None]
  - Therapy interrupted [None]
  - Nausea [None]
  - Asthenia [None]
  - Depression [None]
  - Weight decreased [None]
  - Suicidal ideation [None]
  - Product availability issue [None]

NARRATIVE: CASE EVENT DATE: 20250301
